FAERS Safety Report 8890302 (Version 1)
Quarter: 2012Q4

REPORT INFORMATION
  Report Type: 
  Country: CA (occurrence: CA)
  Receive Date: 20121106
  Receipt Date: 20121106
  Transmission Date: 20130627
  Serious: Yes (Death)
  Sender: FDA-Public Use
  Company Number: PHMT2006CA01020

PATIENT
  Sex: Male

DRUGS (8)
  1. SANDOSTATIN [Suspect]
     Indication: CARCINOID TUMOUR
     Route: 058
     Dates: start: 20050906
  2. SANDOSTATIN LAR [Suspect]
     Indication: CARCINOID TUMOUR
     Dosage: 40 mg, QMO
     Dates: start: 20051223, end: 20060316
  3. AVANDIA [Concomitant]
  4. EPREX [Concomitant]
  5. GLYBURIDE [Concomitant]
  6. METFORMIN HYDROCHLORIDE [Concomitant]
  7. NEULASTA [Concomitant]
  8. LIPITOR [Concomitant]

REACTIONS (6)
  - Thrombosis [Fatal]
  - Injection site reaction [Unknown]
  - Hypertension [Unknown]
  - Hyperglycaemia [Unknown]
  - Diarrhoea [Unknown]
  - Injection site pain [Unknown]
